FAERS Safety Report 25814069 (Version 1)
Quarter: 2025Q3

REPORT INFORMATION
  Report Type: Spontaneous
  Country: US (occurrence: US)
  Receive Date: 20250917
  Receipt Date: 20250917
  Transmission Date: 20251021
  Serious: Yes (Other)
  Sender: BAYER HEALTHCARE LLC
  Company Number: US-BAYER-2025A123201

PATIENT
  Sex: Female

DRUGS (2)
  1. TINACTIN [Suspect]
     Active Substance: TOLNAFTATE
  2. LOTRIMIN ANTIFUNGAL (MICONAZOLE NITRATE) [Suspect]
     Active Substance: MICONAZOLE NITRATE

REACTIONS (13)
  - Mesothelioma malignant [None]
  - Exposure to chemical pollution [None]
  - Fatigue [None]
  - Asthenia [None]
  - Insomnia [None]
  - Pain [None]
  - Stress [None]
  - Anxiety [None]
  - Anxiety [None]
  - Alopecia [None]
  - Nausea [None]
  - Dyspnoea [None]
  - Vomiting [None]
